FAERS Safety Report 9850683 (Version 1)
Quarter: 2014Q1

REPORT INFORMATION
  Report Type: Spontaneous
  Country: FR (occurrence: FR)
  Receive Date: 20140128
  Receipt Date: 20140128
  Transmission Date: 20141002
  Serious: Yes (Other)
  Sender: FDA-Public Use
  Company Number: CHPA2014FR001230

PATIENT
  Sex: Male

DRUGS (2)
  1. NICOTINELL TTS [Suspect]
     Route: 061
  2. ANTIBIOTICS [Suspect]

REACTIONS (6)
  - Skin plaque [Unknown]
  - Hypersensitivity [Unknown]
  - Application site rash [Unknown]
  - Skin haemorrhage [Unknown]
  - Pruritus [Unknown]
  - Application site reaction [Unknown]
